FAERS Safety Report 10265701 (Version 1)
Quarter: 2014Q2

REPORT INFORMATION
  Report Type: Spontaneous
  Country: US (occurrence: None)
  Receive Date: 20140625
  Receipt Date: 20140625
  Transmission Date: 20141212
  Serious: Yes (Life-Threatening, Disabling, Other)
  Sender: FDA-Public Use
  Company Number: None

PATIENT
  Age: 54 Year
  Sex: Female
  Weight: 102.06 kg

DRUGS (26)
  1. VYVANSE SHIRE U.S. AND COMPANY [Suspect]
     Indication: ATTENTION DEFICIT/HYPERACTIVITY DISORDER
     Route: 048
     Dates: start: 20131118, end: 20131125
  2. CYMBALTA [Concomitant]
  3. WELBUTRIN [Concomitant]
  4. TRAZADONE [Concomitant]
  5. XANAX [Concomitant]
  6. LYDODERM [Concomitant]
  7. AUGMENT [Concomitant]
  8. GAVISCAN [Concomitant]
  9. FISH OIL GUMMIES (OMEGA 3^S [Concomitant]
  10. D3 GUMMES [Concomitant]
  11. MULTIVITAMIN AND MINERALS [Concomitant]
  12. EXCEDRINE MIGRAINE [Concomitant]
  13. IBUPROPHEN [Concomitant]
  14. LUBRICATING EYE DROPS [Concomitant]
  15. TYLENOL [Concomitant]
  16. TUMS [Concomitant]
  17. YOGURT [Concomitant]
  18. FENNAL SEED TEA [Concomitant]
  19. CAMOMILE TEA [Concomitant]
  20. MULLENLEAF TEA W/C LOVE [Concomitant]
  21. ALBUTEROL INHALER [Concomitant]
  22. PERCOSET [Concomitant]
  23. LUNESTRO [Concomitant]
  24. ASPIRIN [Concomitant]
  25. FLEXERIL [Concomitant]
  26. STRATLERA [Concomitant]

REACTIONS (14)
  - Psychomotor hyperactivity [None]
  - Tremor [None]
  - Fall [None]
  - Dizziness [None]
  - Fatigue [None]
  - Asthenia [None]
  - Contusion [None]
  - Pain [None]
  - Insomnia [None]
  - Restlessness [None]
  - Fear [None]
  - Tremor [None]
  - Hallucination, visual [None]
  - Nervousness [None]
